FAERS Safety Report 5454307-X (Version None)
Quarter: 2007Q3

REPORT INFORMATION
  Report Type: 
  Country: None (occurrence: None)
  Receive Date: 20070917
  Receipt Date: 20061130
  Transmission Date: 20080115
  Serious: Yes (Hospitalization)
  Sender: FDA-Public Use
  Company Number: US-ASTRAZENECA-2006UW12605

PATIENT
  Age: 20353 Day
  Sex: Female
  Weight: 48.6 kg

DRUGS (5)
  1. SEROQUEL [Suspect]
     Indication: BIPOLAR DISORDER
     Route: 048
     Dates: start: 20060520, end: 20060523
  2. SEROQUEL [Suspect]
     Route: 048
  3. ATIVAN [Concomitant]
  4. BENADRYL [Concomitant]
  5. PROZAC [Concomitant]
     Indication: DEPRESSION
     Route: 048
     Dates: start: 20060523

REACTIONS (3)
  - AGITATION [None]
  - AKATHISIA [None]
  - MUSCLE TWITCHING [None]
